FAERS Safety Report 15376942 (Version 1)
Quarter: 2018Q3

REPORT INFORMATION
  Report Type: Spontaneous
  Country: BR (occurrence: BR)
  Receive Date: 20180913
  Receipt Date: 20180913
  Transmission Date: 20181010
  Serious: Yes (Other)
  Sender: FDA-Public Use
  Company Number: BR-AMGEN-BRASP2015095026

PATIENT
  Age: 50 Year
  Sex: Female
  Weight: 61 kg

DRUGS (5)
  1. ENBREL [Suspect]
     Active Substance: ETANERCEPT
     Dosage: 50 MG, WEEKLY
     Route: 065
  2. ENBREL [Suspect]
     Active Substance: ETANERCEPT
     Dosage: 50 MG, WEEKLY
     Route: 065
  3. METICORTEN [Concomitant]
     Active Substance: PREDNISONE
     Dosage: 5 MG, 1X/DAY (IN THE MORNING)
  4. ENBREL [Suspect]
     Active Substance: ETANERCEPT
     Indication: RHEUMATOID ARTHRITIS
     Dosage: 50 MG, ONCE WEEKLY
     Route: 065
     Dates: start: 2014
  5. CALCIUM [Concomitant]
     Active Substance: CALCIUM
     Dosage: UNK, WEEKLY

REACTIONS (10)
  - Hypoaesthesia [Unknown]
  - Peripheral swelling [Unknown]
  - Mobility decreased [Unknown]
  - Flavivirus infection [Unknown]
  - Headache [Unknown]
  - Pain in extremity [Unknown]
  - Abdominal pain upper [Unknown]
  - Injection site pain [Recovering/Resolving]
  - Insomnia [Unknown]
  - Weight increased [Unknown]
